FAERS Safety Report 4499302-2 (Version None)
Quarter: 2004Q3

REPORT INFORMATION
  Report Type: 
  Country: None (occurrence: None)
  Receive Date: 20040928
  Receipt Date: 20040728
  Transmission Date: 20050211
  Serious: No
  Sender: FDA-Public Use
  Company Number: 04P-163-0268311-00

PATIENT
  Age: 45 Year
  Sex: Female
  Weight: 77.1115 kg

DRUGS (15)
  1. HUMIRA [Suspect]
     Dosage: 40 MG, 1 IN 2 WK, SUBCUTANEOUS
     Route: 058
     Dates: start: 20030101, end: 20030101
  2. HUMIRA [Suspect]
     Dosage: 40 MG, 1 IN 2 WK, SUBCUTANEOUS
     Route: 058
     Dates: start: 20040414, end: 20040505
  3. HUMIRA [Suspect]
     Dosage: 40 MG, 1 IN 2 WK, SUBCUTANEOUS
     Route: 058
     Dates: start: 20040519
  4. FISH OIL [Concomitant]
  5. METHOTREXATE SODIUM [Concomitant]
  6. LEVOTHYROXINE SODIUM [Concomitant]
  7. CONJUGATED ESTROGEN [Concomitant]
  8. PREDNISONE [Concomitant]
  9. LEVETIRACETAM [Concomitant]
  10. TOPIRMATE [Concomitant]
  11. LAMOTRIGINE [Concomitant]
  12. CLONAZEPAM [Concomitant]
  13. POTASSIUM [Concomitant]
  14. ESOMEPRAZOLE [Concomitant]
  15. IBUPROFEN [Concomitant]

REACTIONS (4)
  - DRUG EFFECT DECREASED [None]
  - PHARYNGITIS STREPTOCOCCAL [None]
  - SYNCOPE [None]
  - THYROID FUNCTION TEST ABNORMAL [None]
